FAERS Safety Report 10331462 (Version 2)
Quarter: 2018Q1

REPORT INFORMATION
  Report Type: Spontaneous
  Country: US (occurrence: US)
  Receive Date: 20140722
  Receipt Date: 20180328
  Transmission Date: 20180508
  Serious: No
  Sender: FDA-Public Use
  Company Number: US-PFIZER INC-2014201772

PATIENT
  Age: 45 Year
  Sex: Female

DRUGS (16)
  1. CANASA [Suspect]
     Active Substance: MESALAMINE
     Dosage: UNK
  2. KEFLEX [Suspect]
     Active Substance: CEPHALEXIN
     Dosage: UNK
  3. TETANUS ANTITOXIN [Suspect]
     Active Substance: TETANUS ANTITOXIN
     Dosage: UNK
  4. MESALAMINE. [Suspect]
     Active Substance: MESALAMINE
  5. DIOLAX [Suspect]
     Active Substance: SENNOSIDES A AND B
     Dosage: UNK
  6. ANSAID [Suspect]
     Active Substance: FLURBIPROFEN
     Dosage: UNK
  7. AMPICILLIN TRIHYDRATE. [Suspect]
     Active Substance: AMPICILLIN TRIHYDRATE
     Dosage: UNK
  8. ETODOLAC. [Suspect]
     Active Substance: ETODOLAC
  9. DOXYCYCLINE CALCIUM [Suspect]
     Active Substance: DOXYCYCLINE CALCIUM
     Dosage: UNK
  10. NABUMETONE. [Suspect]
     Active Substance: NABUMETONE
     Dosage: UNK
  11. AMITRIPTYLINE [Suspect]
     Active Substance: AMITRIPTYLINE
     Dosage: UNK
  12. XETANOR [Suspect]
     Active Substance: PAROXETINE HYDROCHLORIDE
     Dosage: UNK
  13. FLAGYL [Suspect]
     Active Substance: METRONIDAZOLE\METRONIDAZOLE HYDROCHLORIDE
     Dosage: UNK
  14. BENZYLPENICILLIN POTASSIUM [Suspect]
     Active Substance: PENICILLIN G POTASSIUM
  15. DEPAKOTE [Suspect]
     Active Substance: DIVALPROEX SODIUM
     Dosage: UNK
  16. CODEINE [Suspect]
     Active Substance: CODEINE
     Dosage: UNK

REACTIONS (1)
  - Drug hypersensitivity [Unknown]
